FAERS Safety Report 8967996 (Version 1)
Quarter: 2012Q4

REPORT INFORMATION
  Report Type: 
  Country: US (occurrence: US)
  Receive Date: 20121218
  Receipt Date: 20121218
  Transmission Date: 20130627
  Serious: Yes (Death, Hospitalization)
  Sender: FDA-Public Use
  Company Number: US-ELI_LILLY_AND_COMPANY-US201212003645

PATIENT
  Age: 24 Year
  Sex: Female

DRUGS (1)
  1. ADCIRCA [Suspect]
     Dosage: 20 mg, bid
     Route: 048

REACTIONS (2)
  - Death [Fatal]
  - Pulmonary veno-occlusive disease [Unknown]
